FAERS Safety Report 25706179 (Version 2)
Quarter: 2025Q4

REPORT INFORMATION
  Report Type: Report from Study
  Country: US (occurrence: US)
  Receive Date: 20250820
  Receipt Date: 20251009
  Transmission Date: 20260118
  Serious: No
  Sender: TEVA
  Company Number: US-TEVA-VS-3363933

PATIENT
  Age: 48 Year
  Sex: Female

DRUGS (2)
  1. AUSTEDO XR [Suspect]
     Active Substance: DEUTETRABENAZINE
     Indication: Product used for unknown indication
     Route: 048
  2. AUSTEDO XR [Suspect]
     Active Substance: DEUTETRABENAZINE
     Indication: Product used for unknown indication
     Route: 048

REACTIONS (6)
  - Anal incontinence [Unknown]
  - Diarrhoea [Unknown]
  - Somnolence [Unknown]
  - Sedation [Unknown]
  - Feeling abnormal [Unknown]
  - Incorrect dose administered [Unknown]
